FAERS Safety Report 7389642-1 (Version None)
Quarter: 2011Q1

REPORT INFORMATION
  Report Type: 
  Country: None (occurrence: None)
  Receive Date: 20110323
  Receipt Date: 20110314
  Transmission Date: 20110831
  Serious: Yes (Death, Hospitalization)
  Sender: FDA-Public Use
  Company Number: 2009AC000159

PATIENT
  Age: 54 Year
  Sex: Male

DRUGS (15)
  1. CHANTIX [Concomitant]
  2. ATROPINE [Concomitant]
  3. LOVASTATIN [Concomitant]
  4. DIGOXIN [Suspect]
     Dosage: 0.25 MG;QD;PO
     Route: 048
     Dates: start: 20000428, end: 20070701
  5. EPINEPHRINE [Concomitant]
  6. METOPROLOL TARTRATE [Concomitant]
  7. BENZAZOPRIL [Concomitant]
  8. LASIX [Concomitant]
  9. ASPIRIN [Concomitant]
  10. FELODIPINE [Concomitant]
  11. HYDROCHLOROTHIAZIDE [Concomitant]
  12. DIGOXIN [Suspect]
     Dosage: PO
     Route: 048
     Dates: start: 20060101, end: 20071001
  13. SPIRONOLACTONE [Concomitant]
  14. COUMADIN [Concomitant]
  15. METFORMIN [Concomitant]

REACTIONS (13)
  - CARDIAC ARREST [None]
  - TREATMENT NONCOMPLIANCE [None]
  - APNOEA [None]
  - PULMONARY HYPERTENSION [None]
  - ECONOMIC PROBLEM [None]
  - UNRESPONSIVE TO STIMULI [None]
  - FALL [None]
  - TRICUSPID VALVE INCOMPETENCE [None]
  - MULTIPLE INJURIES [None]
  - HYPERGLYCAEMIA [None]
  - SUDDEN DEATH [None]
  - ATRIAL SEPTAL DEFECT [None]
  - FACE INJURY [None]
